FAERS Safety Report 7938058-5 (Version None)
Quarter: 2011Q4

REPORT INFORMATION
  Report Type: 
  Country: None (occurrence: None)
  Receive Date: 20111123
  Receipt Date: 20111114
  Transmission Date: 20120403
  Serious: Yes (Other)
  Sender: FDA-Public Use
  Company Number: US-ASTRAZENECA-2011SE68683

PATIENT
  Age: 47 Year
  Sex: Female

DRUGS (5)
  1. NEXIUM [Suspect]
     Indication: EATING DISORDER
     Route: 048
  2. NEXIUM [Suspect]
     Indication: MELAENA
     Route: 048
  3. NEXIUM [Suspect]
     Indication: GASTRIC DISORDER
     Route: 048
  4. NEXIUM [Suspect]
     Indication: DIARRHOEA
     Route: 048
  5. ASPIRIN [Concomitant]
     Dosage: LOW DOSE

REACTIONS (10)
  - ABDOMINAL DISCOMFORT [None]
  - DRUG DOSE OMISSION [None]
  - MELAENA [None]
  - CONDITION AGGRAVATED [None]
  - HAEMATOCHEZIA [None]
  - EATING DISORDER [None]
  - DIARRHOEA [None]
  - GASTRIC HAEMORRHAGE [None]
  - PAIN [None]
  - CONVULSION [None]
